FAERS Safety Report 4548349-6 (Version None)
Quarter: 2005Q1

REPORT INFORMATION
  Report Type: 
  Country: None (occurrence: None)
  Receive Date: 20050106
  Receipt Date: 20050106
  Transmission Date: 20050727
  Serious: Yes (Life-Threatening, Hospitalization)
  Sender: FDA-Public Use
  Company Number: None

PATIENT
  Age: 70 Year
  Sex: Male
  Weight: 64.7 kg

DRUGS (10)
  1. LISINOPRIL [Suspect]
     Indication: HYPERTENSION
     Dosage: 40MG, QD, 20MG  BID, ORAL
     Route: 048
     Dates: start: 19970101, end: 20050103
  2. HYDROCHLOROTHIAZIDE [Suspect]
     Indication: HYPERTENSION
     Dosage: 25MG, 25MG QD ORAL
     Route: 048
     Dates: start: 20041014, end: 20041219
  3. METHYLPHENIDATE [Concomitant]
  4. GLYBURIDE [Concomitant]
  5. PROPOXYPHENE N [Concomitant]
  6. TRAMADOL HCL [Concomitant]
  7. OMEPRAZOLE [Concomitant]
  8. ISOSORBIDE DINITRATE [Concomitant]
  9. METHOCARBAMOL [Concomitant]
  10. SIMVASTATIN [Concomitant]

REACTIONS (1)
  - PANCREATITIS [None]
